FAERS Safety Report 8288194-1 (Version None)
Quarter: 2012Q2

REPORT INFORMATION
  Report Type: 
  Country: None (occurrence: None)
  Receive Date: 20120416
  Receipt Date: 20120407
  Transmission Date: 20120825
  Serious: Yes (Other)
  Sender: FDA-Public Use
  Company Number: US-BAYER-2011-023333

PATIENT
  Age: 31 Year
  Sex: Female
  Weight: 79.819 kg

DRUGS (8)
  1. PROMETHAZINE HCL [Concomitant]
     Indication: VOMITING
  2. PROMETHAZINE HCL [Concomitant]
     Indication: NAUSEA
     Dosage: 25 MG, 1 TABLET EVERY 6-8 HOURS
     Route: 048
     Dates: start: 20091023
  3. ZOLOFT [Concomitant]
     Dosage: 200 MG, OM
  4. XANAX [Concomitant]
     Dosage: 1 MG, TID
  5. DICYCLOMINE [Concomitant]
     Dosage: 10 MG, TID
  6. NSAID'S [Concomitant]
  7. ASPIRIN [Concomitant]
  8. DROSPIRENONE AND ETHINYL ESTRADIOL [Suspect]
     Indication: PREMENSTRUAL SYNDROME
     Dosage: UNK
     Route: 048
     Dates: start: 20090101, end: 20090101

REACTIONS (7)
  - CHOLECYSTITIS CHRONIC [None]
  - DIARRHOEA [None]
  - FLATULENCE [None]
  - INJURY [None]
  - CONSTIPATION [None]
  - GALLBLADDER DISORDER [None]
  - ABDOMINAL DISTENSION [None]
